FAERS Safety Report 4564249-X (Version None)
Quarter: 2005Q1

REPORT INFORMATION
  Report Type: 
  Country: None (occurrence: None)
  Receive Date: 20050128
  Receipt Date: 20040426
  Transmission Date: 20050727
  Serious: No
  Sender: FDA-Public Use
  Company Number: US-GLAXOSMITHKLINE-A0508461A

PATIENT
  Sex: Male

DRUGS (3)
  1. COMBIVIR [Suspect]
  2. NEVIRAPINE [Concomitant]
  3. METHADONE HCL [Concomitant]

REACTIONS (2)
  - INSOMNIA [None]
  - MYALGIA [None]
